FAERS Safety Report 6286737-0 (Version None)
Quarter: 2009Q3

REPORT INFORMATION
  Report Type: 
  Country: None (occurrence: None)
  Receive Date: 20090728
  Receipt Date: 20090721
  Transmission Date: 20100115
  Serious: Yes (Congenital Anomaly)
  Sender: FDA-Public Use
  Company Number: RS-AVENTIS-200914154EU

PATIENT

DRUGS (1)
  1. FUROSEMIDE [Suspect]
     Indication: PROPHYLAXIS
     Route: 064

REACTIONS (2)
  - ANKYLOGLOSSIA CONGENITAL [None]
  - DRUG EXPOSURE DURING PREGNANCY [None]
